FAERS Safety Report 8493702-1 (Version None)
Quarter: 2012Q3

REPORT INFORMATION
  Report Type: 
  Country: None (occurrence: None)
  Receive Date: 20120706
  Receipt Date: 20120626
  Transmission Date: 20120928
  Serious: Yes (Other)
  Sender: FDA-Public Use
  Company Number: AU-B.I. PHARMACEUTICALS,INC./RIDGEFIELD-2012-EU-03309GD

PATIENT
  Sex: Female

DRUGS (7)
  1. ACETAMINOPHEN W/ CODEINE [Suspect]
     Indication: NECK PAIN
  2. EFFEXOR [Concomitant]
     Indication: DEPRESSION
     Dates: start: 20060101
  3. ACETAMINOPHEN W/ CODEINE [Suspect]
     Indication: PAIN
     Dosage: 6 ANZ
     Route: 048
  4. OXYCONTIN [Suspect]
     Indication: PAIN
     Dosage: 110 MG
  5. MOBIC [Suspect]
     Indication: PAIN
  6. MOBIC [Suspect]
     Indication: NECK PAIN
  7. OXYCONTIN [Suspect]
     Indication: NECK PAIN

REACTIONS (5)
  - HEADACHE [None]
  - HYPERHIDROSIS [None]
  - WITHDRAWAL SYNDROME [None]
  - CONSTIPATION [None]
  - SOMNOLENCE [None]
